FAERS Safety Report 17678500 (Version 8)
Quarter: 2020Q4

REPORT INFORMATION
  Report Type: Other
  Country: US (occurrence: US)
  Receive Date: 20200417
  Receipt Date: 20201225
  Transmission Date: 20210113
  Serious: Yes (Other)
  Sender: FDA-Public Use
  Company Number: US-ROCHE-2583547

PATIENT
  Age: 70 Year
  Sex: Female

DRUGS (11)
  1. OMEGA 3 FISH OILS [Concomitant]
     Active Substance: OMEGA-3 FATTY ACIDS
  2. COMPAZINE [Concomitant]
     Active Substance: PROCHLORPERAZINE MALEATE
     Dosage: 10 MINUTES BEFORE ALECENSA
  3. ALECENSA [Suspect]
     Active Substance: ALECTINIB HYDROCHLORIDE
     Indication: METASTASES TO CENTRAL NERVOUS SYSTEM
     Dosage: TAKE 3 CAPSULE(S) BY MOUTH TWICE A DAY
     Route: 048
  4. ALECENSA [Suspect]
     Active Substance: ALECTINIB HYDROCHLORIDE
     Route: 048
  5. ALECENSA [Suspect]
     Active Substance: ALECTINIB HYDROCHLORIDE
     Dosage: ONGOING :YES
     Route: 048
     Dates: start: 202004
  6. LOSARTAN. [Concomitant]
     Active Substance: LOSARTAN
  7. AMITIZA [Concomitant]
     Active Substance: LUBIPROSTONE
  8. METOPROLOL. [Concomitant]
     Active Substance: METOPROLOL
  9. ALECENSA [Suspect]
     Active Substance: ALECTINIB HYDROCHLORIDE
     Indication: BRONCHIAL CARCINOMA
     Dosage: TAKE 4 CAPSULE(S) TWICE A DAY WITH FOOD
     Route: 048
  10. PRAVASTATIN. [Concomitant]
     Active Substance: PRAVASTATIN
  11. FISH OIL [Concomitant]
     Active Substance: FISH OIL

REACTIONS (23)
  - Anxiety [Unknown]
  - Myalgia [Unknown]
  - Back pain [Unknown]
  - Constipation [Unknown]
  - Vision blurred [Unknown]
  - Amnesia [Unknown]
  - Decreased appetite [Unknown]
  - Nausea [Recovered/Resolved]
  - Peripheral swelling [Unknown]
  - Intracranial mass [Unknown]
  - Constipation [Recovering/Resolving]
  - Fatigue [Unknown]
  - Diarrhoea [Unknown]
  - Bradycardia [Unknown]
  - Hypertension [Unknown]
  - Hallucination [Unknown]
  - Atrial fibrillation [Unknown]
  - Pain [Unknown]
  - Haemoglobin decreased [Unknown]
  - Nausea [Unknown]
  - Tachycardia [Unknown]
  - Insomnia [Unknown]
  - Asthenia [Unknown]

NARRATIVE: CASE EVENT DATE: 202004
